FAERS Safety Report 7733199-X (Version None)
Quarter: 2011Q3

REPORT INFORMATION
  Report Type: 
  Country: None (occurrence: None)
  Receive Date: 20110907
  Receipt Date: 20110830
  Transmission Date: 20111222
  Serious: Yes (Hospitalization)
  Sender: FDA-Public Use
  Company Number: GB-ASTELLAS-2011EU005850

PATIENT
  Age: 59 Year
  Sex: Female

DRUGS (5)
  1. TACROLIMUS [Suspect]
     Dosage: UNK
     Route: 048
     Dates: start: 20110727
  2. AMLODIPINE BESILATE [Concomitant]
     Dosage: UNK
     Route: 065
  3. OMEPRAZOLE [Concomitant]
     Dosage: UNK
     Route: 065
  4. ADCAL D3 [Concomitant]
     Dosage: UNK
     Route: 065
  5. PREDNISOLONE [Concomitant]
     Dosage: UNK
     Route: 065

REACTIONS (2)
  - PSYCHOTIC DISORDER [None]
  - AGGRESSION [None]
